FAERS Safety Report 24681402 (Version 1)
Quarter: 2024Q4

REPORT INFORMATION
  Report Type: Spontaneous
  Country: JP (occurrence: JP)
  Receive Date: 20241129
  Receipt Date: 20241129
  Transmission Date: 20250114
  Serious: Yes (Other)
  Sender: ROCHE
  Company Number: JP-CHUGAI-2024041307

PATIENT
  Age: 68 Year
  Sex: Male
  Weight: 73 kg

DRUGS (5)
  1. TECENTRIQ [Suspect]
     Active Substance: ATEZOLIZUMAB
     Indication: Small cell lung cancer
     Dosage: UNK
     Route: 042
  2. CARBOPLATIN [Concomitant]
     Active Substance: CARBOPLATIN
     Indication: Small cell lung cancer
     Dosage: UNK
     Route: 042
  3. ETOPOSIDE [Concomitant]
     Active Substance: ETOPOSIDE
     Indication: Small cell lung cancer
     Dosage: UNK
     Route: 042
  4. METYRAPONE [Concomitant]
     Active Substance: METYRAPONE
     Indication: Ectopic ACTH syndrome
     Dosage: 2,250 MG/DAY
     Route: 065
  5. METYRAPONE [Concomitant]
     Active Substance: METYRAPONE
     Dosage: 2,500-3,000 MG/DAY
     Route: 065

REACTIONS (3)
  - Febrile neutropenia [Unknown]
  - Systemic mycosis [Unknown]
  - Diverticular perforation [Unknown]
